FAERS Safety Report 8453267-7 (Version None)
Quarter: 2012Q2

REPORT INFORMATION
  Report Type: 
  Country: None (occurrence: None)
  Receive Date: 20120620
  Receipt Date: 20120510
  Transmission Date: 20120825
  Serious: Yes (Hospitalization)
  Sender: FDA-Public Use
  Company Number: US-VERTEX PHARMACEUTICALS INC.-AE-2012-006962

PATIENT
  Age: 64 Year

DRUGS (4)
  1. INCIVEK [Suspect]
  2. RIBAVIRIN [Concomitant]
     Indication: HEPATITIS C
  3. INCIVEK [Suspect]
     Indication: HEPATITIS C
     Route: 048
  4. PEGINTERFERON ALFA-2A [Concomitant]
     Indication: HEPATITIS C

REACTIONS (1)
  - ANAEMIA [None]
